FAERS Safety Report 14679149 (Version 5)
Quarter: 2019Q1

REPORT INFORMATION
  Report Type: Spontaneous
  Country: US (occurrence: US)
  Receive Date: 20180326
  Receipt Date: 20190131
  Transmission Date: 20190417
  Serious: No
  Sender: FDA-Public Use
  Company Number: US-PFIZER INC-2018116624

PATIENT
  Age: 9 Year
  Sex: Male
  Weight: 24.36 kg

DRUGS (1)
  1. GENOTROPIN [Suspect]
     Active Substance: SOMATROPIN
     Indication: GROWTH FAILURE
     Dosage: 0.8 MG, 1X/DAY(EVERY NIGHT)
     Route: 058
     Dates: start: 201803, end: 201805

REACTIONS (7)
  - Product dose omission [Unknown]
  - Body tinea [Unknown]
  - Injection site haemorrhage [Unknown]
  - Rash [Unknown]
  - Pruritus [Unknown]
  - Melanoderma [Unknown]
  - Urticaria [Unknown]

NARRATIVE: CASE EVENT DATE: 201803
